FAERS Safety Report 5337381-0 (Version None)
Quarter: 2007Q2

REPORT INFORMATION
  Report Type: 
  Country: None (occurrence: None)
  Receive Date: 20070529
  Receipt Date: 20070517
  Transmission Date: 20071010
  Serious: Yes (Hospitalization)
  Sender: FDA-Public Use
  Company Number: AU-AMGEN-US199681

PATIENT
  Sex: Male

DRUGS (15)
  1. PANITUMUMAB [Suspect]
     Indication: COLORECTAL CANCER
     Route: 042
     Dates: start: 20060811
  2. IRINOTECAN HCL [Suspect]
     Route: 042
     Dates: start: 20060811
  3. FOLINIC ACID [Concomitant]
     Route: 042
     Dates: start: 20060811
  4. FLUOROURACIL [Concomitant]
     Route: 040
     Dates: start: 20060811
  5. FLUOROURACIL [Concomitant]
     Route: 041
     Dates: start: 20060811
  6. LEVOTHYROXINE SODIUM [Concomitant]
     Route: 048
     Dates: start: 20010101
  7. ATORVASTATIN [Concomitant]
     Route: 048
     Dates: start: 20050101
  8. OXYCODONE HCL [Concomitant]
     Route: 048
     Dates: start: 20060701
  9. OXAZEPAM [Concomitant]
     Route: 048
     Dates: start: 20060701
  10. PARACETAMOL [Concomitant]
     Route: 048
     Dates: start: 20050101
  11. LOPERAMIDE HCL [Concomitant]
     Route: 048
     Dates: start: 20060815
  12. MAGNESIUM ASPARTATE [Concomitant]
     Route: 048
     Dates: start: 20061004
  13. VENTOLIN [Concomitant]
     Dates: start: 20050101
  14. DI-GESIC [Concomitant]
     Route: 048
  15. SERETIDE [Concomitant]
     Route: 065
     Dates: start: 20061017

REACTIONS (2)
  - DIARRHOEA [None]
  - HYPOTENSION [None]
